FAERS Safety Report 24894165 (Version 1)
Quarter: 2025Q1

REPORT INFORMATION
  Report Type: Spontaneous
  Country: US (occurrence: US)
  Receive Date: 20250128
  Receipt Date: 20250128
  Transmission Date: 20250409
  Serious: Yes (Other)
  Sender: SUNOVION
  Company Number: US-SMPA-2025SPA000532

PATIENT

DRUGS (4)
  1. APTIOM [Suspect]
     Active Substance: ESLICARBAZEPINE ACETATE
     Indication: Seizure
     Dosage: 400 MG, QD, EVERY NIGHT AT BEDTIME
     Route: 048
     Dates: start: 20191206
  2. APTIOM [Suspect]
     Active Substance: ESLICARBAZEPINE ACETATE
     Dosage: 800 MG, QD, EVERY NIGHT AT BEDTIME
     Route: 048
  3. APTIOM [Suspect]
     Active Substance: ESLICARBAZEPINE ACETATE
     Dosage: 1200 MG, QD, EVERY NIGHT AT BEDTIME
     Route: 048
  4. CLONAZEPAM [Concomitant]
     Active Substance: CLONAZEPAM

REACTIONS (9)
  - Seizure [Recovered/Resolved]
  - Communication disorder [Unknown]
  - Hypoacusis [Unknown]
  - Palpitations [Unknown]
  - Hepatic enzyme increased [Unknown]
  - Anxiety [Recovering/Resolving]
  - Speech disorder [Unknown]
  - Aphasia [Unknown]
  - Somnolence [Unknown]

NARRATIVE: CASE EVENT DATE: 20191220
